FAERS Safety Report 5566825-4 (Version None)
Quarter: 2007Q4

REPORT INFORMATION
  Report Type: 
  Country: None (occurrence: None)
  Receive Date: 20071219
  Receipt Date: 20071214
  Transmission Date: 20080405
  Serious: Yes (Death, Congenital Anomaly)
  Sender: FDA-Public Use
  Company Number: B0500147B

PATIENT
  Sex: Female

DRUGS (3)
  1. KIVEXA [Suspect]
     Indication: HIV INFECTION
     Dates: end: 20070628
  2. TELZIR [Suspect]
     Indication: HIV INFECTION
     Dates: end: 20070628
  3. NORVIR [Suspect]
     Indication: HIV INFECTION
     Dates: end: 20060628

REACTIONS (4)
  - DRUG EXPOSURE DURING PREGNANCY [None]
  - HEART DISEASE CONGENITAL [None]
  - LUNG DISORDER [None]
  - TRICUSPID VALVE INCOMPETENCE [None]
